FAERS Safety Report 17423969 (Version 1)
Quarter: 2020Q1

REPORT INFORMATION
  Report Type: Not Available
  Country: US (occurrence: US)
  Receive Date: 20200217
  Receipt Date: 20200217
  Transmission Date: 20200409
  Serious: Yes (Other)
  Sender: FDA-Public Use
  Company Number: US-NEUROCRINE BIOSCIENCES INC.-2020NBI00415

PATIENT
  Sex: Female

DRUGS (6)
  1. LEVOTHROXINE [Concomitant]
     Active Substance: LEVOTHYROXINE
  2. LACTULOSE. [Concomitant]
     Active Substance: LACTULOSE
  3. ASPIRIN. [Concomitant]
     Active Substance: ASPIRIN
  4. INGREZZA [Suspect]
     Active Substance: VALBENAZINE
     Indication: TARDIVE DYSKINESIA
     Route: 048
     Dates: start: 20190628
  5. ZOFRAN [Concomitant]
     Active Substance: ONDANSETRON HYDROCHLORIDE
  6. LISINOPRIL. [Concomitant]
     Active Substance: LISINOPRIL

REACTIONS (1)
  - Dementia Alzheimer^s type [Unknown]
